FAERS Safety Report 22074297 (Version 1)
Quarter: 2023Q1

REPORT INFORMATION
  Report Type: Spontaneous
  Country: US (occurrence: US)
  Receive Date: 20230308
  Receipt Date: 20230308
  Transmission Date: 20230417
  Serious: No
  Sender: FDA-Public Use
  Company Number: US-PFIZER INC-202300025711

PATIENT
  Age: 78 Year
  Sex: Female
  Weight: 61.23 kg

DRUGS (3)
  1. IBRANCE [Suspect]
     Active Substance: PALBOCICLIB
     Dosage: 125 MG
  2. GABAPENTIN [Concomitant]
     Active Substance: GABAPENTIN
  3. IBUPROFEN [Concomitant]
     Active Substance: IBUPROFEN
     Indication: Pain

REACTIONS (2)
  - Confusional state [Unknown]
  - Fatigue [Unknown]
